FAERS Safety Report 5500669-4 (Version None)
Quarter: 2007Q4

REPORT INFORMATION
  Report Type: 
  Country: None (occurrence: None)
  Receive Date: 20071025
  Receipt Date: 20071012
  Transmission Date: 20080405
  Serious: Yes (Hospitalization, Other)
  Sender: FDA-Public Use
  Company Number: 2007US001541

PATIENT
  Age: 64 Year
  Sex: Male

DRUGS (14)
  1. PROGRAF [Suspect]
     Indication: LIVER TRANSPLANT
     Dosage: 9 MG, UID/QD, ORAL
     Route: 048
     Dates: start: 20070316, end: 20070621
  2. PROGRAF [Suspect]
     Indication: LIVER TRANSPLANT
     Dosage: 9 MG, UID/QD, ORAL
     Route: 048
     Dates: start: 20070623
  3. MYCOPHENOLATE MOFETIL [Suspect]
     Indication: LIVER TRANSPLANT
     Dosage: 1 G, BID, ORAL; 750 MG, UID/QD, ORAL
     Route: 048
     Dates: start: 20070316, end: 20070620
  4. MYCOPHENOLATE MOFETIL [Suspect]
     Indication: LIVER TRANSPLANT
     Dosage: 1 G, BID, ORAL; 750 MG, UID/QD, ORAL
     Route: 048
     Dates: start: 20070629, end: 20070812
  5. PRILOSEC [Concomitant]
  6. BACTRIM [Concomitant]
  7. MAGNESIUM SULFATE [Concomitant]
  8. URSODIOL (URSODEOXYCHOLIC ACID) [Concomitant]
  9. LASIX [Concomitant]
  10. VALCYTE [Concomitant]
  11. STARLIX [Concomitant]
  12. INSULIN GLARGINE (INSULIN GLARGINE) [Concomitant]
  13. ULTRAM [Concomitant]
  14. DILAUDID [Concomitant]

REACTIONS (28)
  - ADRENAL NEOPLASM [None]
  - ATELECTASIS [None]
  - BILIARY DILATATION [None]
  - BILOMA [None]
  - BRAIN SCAN ABNORMAL [None]
  - BRONCHIECTASIS [None]
  - DECREASED APPETITE [None]
  - DIVERTICULUM [None]
  - FATIGUE [None]
  - FEBRILE NEUTROPENIA [None]
  - FUNGAL INFECTION [None]
  - GASTROINTESTINAL DISORDER [None]
  - GYNAECOMASTIA [None]
  - HEPATIC CYST [None]
  - IMMUNOSUPPRESSION [None]
  - INFECTION [None]
  - INTESTINAL GASTRIC METAPLASIA [None]
  - LUNG ABSCESS [None]
  - LUNG NEOPLASM [None]
  - MENTAL STATUS CHANGES [None]
  - MYOCARDIAL CALCIFICATION [None]
  - PLATELET COUNT DECREASED [None]
  - PLEURAL EFFUSION [None]
  - PULMONARY CONGESTION [None]
  - PULMONARY FIBROSIS [None]
  - SPLENOMEGALY [None]
  - WEIGHT DECREASED [None]
  - WHITE BLOOD CELL COUNT DECREASED [None]
